FAERS Safety Report 5285074-0 (Version None)
Quarter: 2007Q2

REPORT INFORMATION
  Report Type: 
  Country: None (occurrence: None)
  Receive Date: 20070403
  Receipt Date: 20070330
  Transmission Date: 20071010
  Serious: No
  Sender: FDA-Public Use
  Company Number: 2006UW10947

PATIENT
  Age: 15129 Day
  Sex: Female
  Weight: 125 kg

DRUGS (11)
  1. SEROQUEL [Suspect]
     Indication: ANXIETY
     Dosage: DOSE 25 MG - 100 MG
     Route: 048
     Dates: start: 20010101, end: 20020101
  2. SEROQUEL [Suspect]
     Indication: DEPRESSION
     Dosage: DOSE 25 MG - 100 MG
     Route: 048
     Dates: start: 20010101, end: 20020101
  3. SEROQUEL [Suspect]
     Indication: SCHIZOAFFECTIVE DISORDER
     Dosage: DOSE 25 MG - 100 MG
     Route: 048
     Dates: start: 20010101, end: 20020101
  4. ABILIFY [Concomitant]
  5. GEODON [Concomitant]
  6. HALDOL [Concomitant]
  7. RISPERDAL [Concomitant]
  8. THORAZINE [Concomitant]
  9. ZYPREXA [Concomitant]
  10. CANNABIS [Concomitant]
     Dates: start: 19860101, end: 19860101
  11. MARIJUANA [Concomitant]
     Dates: start: 19860101, end: 19860101

REACTIONS (1)
  - DIABETES MELLITUS [None]
